FAERS Safety Report 15639679 (Version 1)
Quarter: 2018Q4

REPORT INFORMATION
  Report Type: Spontaneous
  Country: US (occurrence: US)
  Receive Date: 20181120
  Receipt Date: 20181120
  Transmission Date: 20190205
  Serious: Yes (Other)
  Sender: FDA-Public Use
  Company Number: US-PFIZER INC-2018469839

PATIENT
  Age: 49 Year
  Sex: Female
  Weight: 68.27 kg

DRUGS (3)
  1. CORTEF [Suspect]
     Active Substance: HYDROCORTISONE
     Indication: AUTOIMMUNE DISORDER
     Dosage: UNK
  2. HYDROCORTISONE ACETATE. [Suspect]
     Active Substance: HYDROCORTISONE ACETATE
     Indication: AUTOIMMUNE DISORDER
     Dosage: UNK
  3. LYRICA [Concomitant]
     Active Substance: PREGABALIN
     Dosage: UNK

REACTIONS (4)
  - Bone disorder [Not Recovered/Not Resolved]
  - Immune system disorder [Unknown]
  - Drug ineffective [Unknown]
  - Drug dependence [Unknown]
